FAERS Safety Report 17511543 (Version 1)
Quarter: 2020Q1

REPORT INFORMATION
  Report Type: Spontaneous
  Country: DE (occurrence: DE)
  Receive Date: 20200306
  Receipt Date: 20200306
  Transmission Date: 20200409
  Serious: Yes (Other)
  Sender: FDA-Public Use
  Company Number: DE-BRACCO-2020DE01107

PATIENT
  Sex: Female

DRUGS (2)
  1. MULTIHANCE [Suspect]
     Active Substance: GADOBENATE DIMEGLUMINE
     Dosage: 6 INJECTIONS BETWEEN 12-JUN-2016 AND 10-JUN-2018
  2. PROHANCE [Suspect]
     Active Substance: GADOTERIDOL
     Dosage: 6 INJECTIONS BETWEEN 12-JUN-2016 AND 10-JUN-2018

REACTIONS (1)
  - Contrast media toxicity [Unknown]

NARRATIVE: CASE EVENT DATE: 20180107
